FAERS Safety Report 9864849 (Version 2)
Quarter: 2014Q1

REPORT INFORMATION
  Report Type: Spontaneous
  Country: US (occurrence: US)
  Receive Date: 20140203
  Receipt Date: 20140203
  Transmission Date: 20141002
  Serious: No
  Sender: FDA-Public Use
  Company Number: US-AMGEN-USASP2014002799

PATIENT
  Age: 60 Year
  Sex: Male
  Weight: 131.52 kg

DRUGS (8)
  1. ENBREL [Suspect]
     Indication: PSORIASIS
     Dosage: 50 MG, 2 TIMES/WK
     Route: 058
     Dates: start: 201310, end: 20140115
  2. ENBREL [Suspect]
     Indication: PSORIATIC ARTHROPATHY
  3. CELEBREX [Concomitant]
     Dosage: 100 MG, UNK
  4. METFORMIN [Concomitant]
     Dosage: 1000 MG, UNK
  5. GLIPIZIDE [Concomitant]
     Dosage: 10 MG, UNK
  6. FISH OIL [Concomitant]
     Dosage: UNK
  7. NYQUIL COLD + FLU [Concomitant]
     Dosage: UNK
  8. DAYQUIL COLD + FLU [Concomitant]
     Dosage: UNK

REACTIONS (2)
  - Arthralgia [Unknown]
  - Nasopharyngitis [Not Recovered/Not Resolved]
